FAERS Safety Report 25498888 (Version 1)
Quarter: 2025Q3

REPORT INFORMATION
  Report Type: Spontaneous
  Country: AU (occurrence: AU)
  Receive Date: 20250701
  Receipt Date: 20250701
  Transmission Date: 20251021
  Serious: Yes (Other)
  Sender: MYLAN
  Company Number: AU-002147023-PHHY2015AU095209

PATIENT
  Sex: Male

DRUGS (1)
  1. CLOZARIL [Suspect]
     Active Substance: CLOZAPINE
     Indication: Schizophrenia
     Dates: start: 20150710, end: 20150729

REACTIONS (3)
  - Cardiac disorder [Unknown]
  - Troponin increased [Unknown]
  - Myocarditis [Unknown]
